FAERS Safety Report 11507509 (Version 1)
Quarter: 2015Q3

REPORT INFORMATION
  Report Type: Spontaneous
  Country: CA (occurrence: CA)
  Receive Date: 20150915
  Receipt Date: 20150915
  Transmission Date: 20151125
  Serious: Yes (Other)
  Sender: FDA-Public Use
  Company Number: CA-TEVA-592747ACC

PATIENT
  Age: 46 Year
  Sex: Male

DRUGS (1)
  1. RATIO-OXYCOCET [Suspect]
     Active Substance: ACETAMINOPHEN\OXYCODONE HYDROCHLORIDE
     Indication: PAIN MANAGEMENT
     Dosage: 12 DOSAGE FORMS DAILY;
     Route: 065

REACTIONS (10)
  - Decreased appetite [Recovered/Resolved]
  - Blindness [Recovered/Resolved]
  - Nicotine dependence [Recovered/Resolved]
  - Overdose [Recovered/Resolved]
  - Weight decreased [Recovered/Resolved]
  - Alopecia [Recovered/Resolved]
  - Insomnia [Recovered/Resolved]
  - Stress [Recovered/Resolved]
  - Aggression [Recovered/Resolved]
  - Concomitant disease aggravated [Recovered/Resolved]
